FAERS Safety Report 5223485-X (Version None)
Quarter: 2007Q1

REPORT INFORMATION
  Report Type: 
  Country: None (occurrence: None)
  Receive Date: 20070125
  Receipt Date: 20070116
  Transmission Date: 20070707
  Serious: Yes (Other)
  Sender: FDA-Public Use
  Company Number: 15540

PATIENT
  Age: 65 Year
  Sex: Male

DRUGS (1)
  1. CARBOPLATIN [Suspect]
     Dosage: 988 MG Q21DAYS IV
     Route: 042

REACTIONS (6)
  - ANAPHYLACTIC REACTION [None]
  - ANXIETY [None]
  - BACK PAIN [None]
  - DYSPNOEA [None]
  - FLUSHING [None]
  - HYPOTENSION [None]
